FAERS Safety Report 4536867-6 (Version None)
Quarter: 2004Q4

REPORT INFORMATION
  Report Type: 
  Country: None (occurrence: None)
  Receive Date: 20041223
  Receipt Date: 20041029
  Transmission Date: 20050328
  Serious: Yes (Other)
  Sender: FDA-Public Use
  Company Number: NL-GLAXOSMITHKLINE-B0350593A

PATIENT
  Age: 8 Year
  Sex: Male

DRUGS (2)
  1. FLIXOTIDE [Suspect]
     Indication: ASTHMA
     Dates: start: 20000101, end: 20041124
  2. SERETIDE [Concomitant]
     Dates: start: 20041124

REACTIONS (4)
  - ACCIDENTAL OVERDOSE [None]
  - FALL [None]
  - MOTOR DYSFUNCTION [None]
  - PAIN IN EXTREMITY [None]
